FAERS Safety Report 5757842-X (Version None)
Quarter: 2008Q2

REPORT INFORMATION
  Report Type: 
  Country: None (occurrence: None)
  Receive Date: 20080603
  Receipt Date: 20080528
  Transmission Date: 20081010
  Serious: Yes (Hospitalization, Other)
  Sender: FDA-Public Use
  Company Number: PHHY2008JP03114

PATIENT
  Age: 91 Year
  Sex: Male

DRUGS (12)
  1. LOCHOL [Suspect]
     Indication: HYPERCHOLESTEROLAEMIA
     Dosage: 20 MG/DAY
     Route: 048
     Dates: start: 20071116, end: 20080308
  2. LEVOFLOXACIN [Suspect]
     Indication: NASOPHARYNGITIS
     Dosage: 3 TAB/DAY, 300 MG
     Route: 048
     Dates: start: 20080304, end: 20080305
  3. SERMION [Concomitant]
     Dosage: 15 MG/DAY
     Route: 048
     Dates: end: 20080307
  4. SIGMART [Concomitant]
     Dosage: 15 MG/DAY
     Route: 048
     Dates: end: 20080307
  5. JUVELA [Concomitant]
     Dosage: 600 MG/DAY
     Route: 048
     Dates: end: 20080308
  6. RHYTHMY [Concomitant]
     Dosage: 2MG/DAY
     Route: 048
     Dates: end: 20080307
  7. KIPRES [Concomitant]
     Indication: NASOPHARYNGITIS
     Dosage: 10 MG
     Route: 048
     Dates: start: 20080305, end: 20080305
  8. MUCODYNE [Concomitant]
     Indication: NASOPHARYNGITIS
     Dosage: 500 MG, TID
     Route: 048
     Dates: start: 20080305, end: 20080305
  9. FLUID/ELECTROLYTE REPLACEMENT THERAPY [Concomitant]
     Dosage: UNK, UNK
     Dates: start: 20080307, end: 20080405
  10. FLUID/ELECTROLYTE REPLACEMENT THERAPY [Concomitant]
     Dates: start: 20080410
  11. ALLOPURINOL [Concomitant]
     Dosage: 200 MG
     Route: 048
     Dates: end: 20080308
  12. PL [Concomitant]
     Route: 048
     Dates: start: 20080304, end: 20080305

REACTIONS (18)
  - ALANINE AMINOTRANSFERASE INCREASED [None]
  - ASPARTATE AMINOTRANSFERASE INCREASED [None]
  - BLOOD CREATINE PHOSPHOKINASE INCREASED [None]
  - BLOOD CREATININE INCREASED [None]
  - BLOOD GLUCOSE INCREASED [None]
  - BLOOD LACTATE DEHYDROGENASE INCREASED [None]
  - BLOOD POTASSIUM INCREASED [None]
  - BLOOD UREA INCREASED [None]
  - LYMPHOCYTE COUNT DECREASED [None]
  - MUSCULAR WEAKNESS [None]
  - NASOPHARYNGITIS [None]
  - NEUTROPHIL COUNT DECREASED [None]
  - PLATELET COUNT DECREASED [None]
  - POLYURIA [None]
  - RED BLOOD CELL COUNT INCREASED [None]
  - RENAL FAILURE CHRONIC [None]
  - RHABDOMYOLYSIS [None]
  - WHITE BLOOD CELL COUNT INCREASED [None]
